FAERS Safety Report 5530014-X (Version None)
Quarter: 2007Q4

REPORT INFORMATION
  Report Type: 
  Country: None (occurrence: None)
  Receive Date: 20071127
  Receipt Date: 20071112
  Transmission Date: 20080405
  Serious: Yes (Hospitalization)
  Sender: FDA-Public Use
  Company Number: 200711010

PATIENT
  Age: 59 Year
  Sex: Male
  Weight: 96.6162 kg

DRUGS (15)
  1. TESTIM [Suspect]
     Indication: BLOOD TESTOSTERONE DECREASED
     Dosage: 50 MG, DAILY, TRANSDERMAL
     Route: 062
     Dates: start: 20070612, end: 20070620
  2. CAMPRAL [Concomitant]
  3. BENADRYL [Concomitant]
  4. GEODON [Concomitant]
  5. PROTONIX [Concomitant]
  6. TRICOR [Concomitant]
  7. LEXAPRO [Concomitant]
  8. LEVOTHYROXINE SODIUM [Concomitant]
  9. ALTACE [Concomitant]
  10. COREG [Concomitant]
  11. SEROQUEL [Concomitant]
  12. KLONOPIN [Concomitant]
  13. SUDAFED 12 HOUR [Concomitant]
  14. DEPAKOTE [Concomitant]
  15. AMBIEN [Concomitant]

REACTIONS (13)
  - AFFECTIVE DISORDER [None]
  - AGGRESSION [None]
  - AGITATION [None]
  - CONVULSION [None]
  - DELUSION OF GRANDEUR [None]
  - DEPRESSION SUICIDAL [None]
  - HYPOGLYCAEMIA [None]
  - ILL-DEFINED DISORDER [None]
  - IMPULSIVE BEHAVIOUR [None]
  - INSOMNIA [None]
  - JUDGEMENT IMPAIRED [None]
  - MANIA [None]
  - RASH [None]
